FAERS Safety Report 5164724-3 (Version None)
Quarter: 2006Q4

REPORT INFORMATION
  Report Type: 
  Country: None (occurrence: None)
  Receive Date: 20061205
  Receipt Date: 20061113
  Transmission Date: 20070319
  Serious: Yes (Death, Life-Threatening, Hospitalization, Disabling, Other)
  Sender: FDA-Public Use
  Company Number: US-GLAXOSMITHKLINE-A0627267A

PATIENT
  Age: 70 Year
  Sex: Male
  Weight: 80.9 kg

DRUGS (3)
  1. HYCAMTIN [Suspect]
     Indication: SMALL CELL LUNG CANCER STAGE UNSPECIFIED
     Dosage: 1.5MG VARIABLE DOSE
     Route: 042
     Dates: start: 20061016, end: 20061020
  2. ASCORBIC ACID [Concomitant]
     Route: 042
  3. CONCURRENT MEDICATIONS [Concomitant]

REACTIONS (15)
  - ALVEOLITIS [None]
  - BLOOD GASES ABNORMAL [None]
  - BRONCHIECTASIS [None]
  - DEATH [None]
  - EMPHYSEMA [None]
  - INFECTION [None]
  - LUNG CONSOLIDATION [None]
  - LUNG INFECTION [None]
  - PLEURAL FIBROSIS [None]
  - PULMONARY FIBROSIS [None]
  - PULMONARY HAEMORRHAGE [None]
  - PULMONARY HILUM MASS [None]
  - PULMONARY OEDEMA [None]
  - RECURRENT CANCER [None]
  - RESPIRATORY FAILURE [None]
